FAERS Safety Report 6951295-1 (Version None)
Quarter: 2010Q3

REPORT INFORMATION
  Report Type: 
  Country: None (occurrence: None)
  Receive Date: 20100828
  Receipt Date: 20100316
  Transmission Date: 20110219
  Serious: No
  Sender: FDA-Public Use
  Company Number: US-ABBOTT-10P-163-0633964-00

PATIENT
  Sex: Female
  Weight: 65.83 kg

DRUGS (4)
  1. NIASPAN [Suspect]
     Indication: MYOCARDIAL INFARCTION
     Dosage: AT NIGHT
     Dates: start: 20100301
  2. METOPROLOL [Concomitant]
     Indication: PANIC ATTACK
  3. ADVIL LIQUI-GELS [Concomitant]
     Indication: PRODUCT USED FOR UNKNOWN INDICATION
  4. VITAMINS [Concomitant]
     Indication: PRODUCT USED FOR UNKNOWN INDICATION

REACTIONS (6)
  - CHILLS [None]
  - CONSTIPATION [None]
  - INSOMNIA [None]
  - MYALGIA [None]
  - NASOPHARYNGITIS [None]
  - NERVOUSNESS [None]
